FAERS Safety Report 17929381 (Version 1)
Quarter: 2020Q2

REPORT INFORMATION
  Report Type: Spontaneous
  Country: US (occurrence: US)
  Receive Date: 20200622
  Receipt Date: 20200622
  Transmission Date: 20200714
  Serious: Yes (Hospitalization)
  Sender: FDA-Public Use
  Company Number: None

PATIENT
  Age: 61 Year
  Sex: Female

DRUGS (23)
  1. DUREZOL [Concomitant]
     Active Substance: DIFLUPREDNATE
  2. ACETAZOLAMID [Concomitant]
     Active Substance: ACETAZOLAMIDE
  3. BREO ELLIPTA [Concomitant]
     Active Substance: FLUTICASONE FUROATE\VILANTEROL TRIFENATATE
  4. FLUTICASONE. [Concomitant]
     Active Substance: FLUTICASONE
  5. IPRATROPIUM/SOL [Concomitant]
  6. FOLIC ACID. [Concomitant]
     Active Substance: FOLIC ACID
  7. TRELEGY ELLIPTA [Concomitant]
     Active Substance: FLUTICASONE FUROATE\UMECLIDINIUM BROMIDE\VILANTEROL TRIFENATATE
  8. PREGABALIN. [Concomitant]
     Active Substance: PREGABALIN
  9. HUMIRA [Suspect]
     Active Substance: ADALIMUMAB
     Indication: ARTHRITIS
     Route: 058
     Dates: start: 20180424
  10. CEPHALEXIN. [Concomitant]
     Active Substance: CEPHALEXIN
  11. METHOZOLAMID [Concomitant]
  12. BRIMONIDE [Concomitant]
  13. DORZOLAMIDE [Concomitant]
     Active Substance: DORZOLAMIDE
  14. METHOTREXATE. [Concomitant]
     Active Substance: METHOTREXATE
  15. LORAZEPAM. [Concomitant]
     Active Substance: LORAZEPAM
  16. DILTIAZEM. [Concomitant]
     Active Substance: DILTIAZEM
  17. POT CHORIDE [Concomitant]
  18. NEO/POLY/DEX OIN [Concomitant]
  19. RHOPRESSA [Concomitant]
     Active Substance: NETARSUDIL MESYLATE
  20. LINZESS [Concomitant]
     Active Substance: LINACLOTIDE
  21. ALBUTEROL. [Concomitant]
     Active Substance: ALBUTEROL
  22. KETOROLAC [Concomitant]
     Active Substance: KETOROLAC TROMETHAMINE
  23. AMMONIUM LAC [Concomitant]

REACTIONS (3)
  - Photophobia [None]
  - Ocular hyperaemia [None]
  - Ocular discomfort [None]

NARRATIVE: CASE EVENT DATE: 202006
